FAERS Safety Report 17158435 (Version 1)
Quarter: 2019Q4

REPORT INFORMATION
  Report Type: Spontaneous
  Country: US (occurrence: US)
  Receive Date: 20191213
  Receipt Date: 20191213
  Transmission Date: 20200122
  Serious: Yes (Hospitalization)
  Sender: FDA-Public Use
  Company Number: None

PATIENT
  Age: 59 Year
  Sex: Male
  Weight: 131.8 kg

DRUGS (7)
  1. CILOSTAZOL. [Suspect]
     Active Substance: CILOSTAZOL
     Route: 048
  2. LISINOPRIL 20MG DAILY [Concomitant]
  3. DULOXETINE 60MG DAILY [Concomitant]
  4. RIVAROXABAN [Suspect]
     Active Substance: RIVAROXABAN
     Indication: ATRIAL FIBRILLATION
     Route: 048
     Dates: start: 20130927
  5. LEVOTHYROXINE 100MCG DAILY [Concomitant]
  6. AMIODARONE 200MG DAILY [Concomitant]
  7. GABAPENTIN 300MG DAILY [Concomitant]

REACTIONS (2)
  - Gastrointestinal haemorrhage [None]
  - Packed red blood cell transfusion [None]

NARRATIVE: CASE EVENT DATE: 20160128
